FAERS Safety Report 15802322 (Version 1)
Quarter: 2019Q1

REPORT INFORMATION
  Report Type: Spontaneous
  Country: US (occurrence: US)
  Receive Date: 20190109
  Receipt Date: 20190109
  Transmission Date: 20190417
  Serious: Yes (Hospitalization)
  Sender: FDA-Public Use
  Company Number: US-ELI_LILLY_AND_COMPANY-US201901001922

PATIENT
  Sex: Female

DRUGS (3)
  1. HUMALOG [Suspect]
     Active Substance: INSULIN LISPRO
     Indication: TYPE 1 DIABETES MELLITUS
     Dosage: UNK, UNKNOWN
     Route: 058
     Dates: start: 1993, end: 2017
  2. HUMALOG [Suspect]
     Active Substance: INSULIN LISPRO
     Dosage: 40 U, DAILY
     Route: 058
     Dates: start: 201809
  3. NOVOLOG [Suspect]
     Active Substance: INSULIN ASPART
     Indication: TYPE 1 DIABETES MELLITUS
     Dosage: UNK, UNKNOWN
     Route: 065
     Dates: start: 2017, end: 201809

REACTIONS (7)
  - Blood glucose increased [Recovered/Resolved]
  - Weight increased [Recovered/Resolved]
  - Vertigo [Recovered/Resolved]
  - Fall [Recovered/Resolved]
  - Ketoacidosis [Recovered/Resolved]
  - Diabetic complication [Unknown]
  - Facial bones fracture [Recovered/Resolved]

NARRATIVE: CASE EVENT DATE: 2018
